FAERS Safety Report 10181522 (Version 1)
Quarter: 2014Q2

REPORT INFORMATION
  Report Type: Spontaneous
  Country: US (occurrence: US)
  Receive Date: 20140519
  Receipt Date: 20140519
  Transmission Date: 20141212
  Serious: Yes (Other)
  Sender: FDA-Public Use
  Company Number: US-GLAXOSMITHKLINE-A1073333A

PATIENT
  Age: 65 Year
  Sex: Female

DRUGS (13)
  1. LOVAZA [Suspect]
     Indication: BLOOD TRIGLYCERIDES INCREASED
     Dosage: 2CAP TWICE PER DAY
     Route: 048
     Dates: start: 2013, end: 20140430
  2. LEVOTHYROXINE [Concomitant]
  3. CRESTOR [Concomitant]
  4. VOLTAREN [Concomitant]
  5. SUPPLEMENT [Concomitant]
  6. VINPOCETINE [Concomitant]
  7. VITAMIN D3 [Concomitant]
  8. CHROMIUM PICOLINATE [Concomitant]
  9. VITAMIN C [Concomitant]
  10. ECHINACEA [Concomitant]
  11. ENZYMES [Concomitant]
  12. CHROMIUM [Concomitant]
  13. NIACIN [Concomitant]

REACTIONS (9)
  - Urinary retention [Unknown]
  - Joint swelling [Unknown]
  - Urinary tract disorder [Unknown]
  - Blood urine present [Unknown]
  - Renal pain [Unknown]
  - Back pain [Unknown]
  - Dehydration [Unknown]
  - Food craving [Recovered/Resolved]
  - Drug administration error [Unknown]
